FAERS Safety Report 19658460 (Version 1)
Quarter: 2021Q3

REPORT INFORMATION
  Report Type: Other
  Country: US (occurrence: US)
  Receive Date: 20210804
  Receipt Date: 20210804
  Transmission Date: 20211014
  Serious: Yes (Other)
  Sender: FDA-Public Use
  Company Number: US-DEXPHARM-20211236

PATIENT
  Age: 83 Year
  Sex: Female

DRUGS (4)
  1. PREDNISOLONE ACETATE. [Suspect]
     Active Substance: PREDNISOLONE ACETATE
  2. DEXAMETHASONE. [Suspect]
     Active Substance: DEXAMETHASONE
  3. NEPAFENAC [Suspect]
     Active Substance: NEPAFENAC
  4. NEOMYCIN/POLYMIXIN?B/GRAMICIDIN [Suspect]
     Active Substance: GRAMICIDIN\NEOMYCIN\POLYMYXIN B SULFATE

REACTIONS (2)
  - Dacryostenosis acquired [Recovered/Resolved]
  - Drug interaction [Recovered/Resolved]
